FAERS Safety Report 5348476-X (Version None)
Quarter: 2007Q2

REPORT INFORMATION
  Report Type: 
  Country: None (occurrence: None)
  Receive Date: 20070605
  Receipt Date: 20070521
  Transmission Date: 20071010
  Serious: Yes (Life-Threatening, Hospitalization)
  Sender: FDA-Public Use
  Company Number: 070517-0000521

PATIENT
  Sex: Female

DRUGS (4)
  1. DACTINOMYCIN [Suspect]
     Indication: CHORIOCARCINOMA
     Dosage: 0.5 MG; UNK; IV
     Route: 042
     Dates: start: 20050201, end: 20050513
  2. METHOTREXATE [Suspect]
     Indication: CHORIOCARCINOMA
     Dates: start: 20050201, end: 20050513
  3. ETOPOSIDE [Suspect]
     Indication: CHORIOCARCINOMA
     Dosage: SEE IMAGE
     Route: 042
     Dates: start: 20050201, end: 20050404
  4. ETOPOSIDE [Suspect]
     Indication: CHORIOCARCINOMA
     Dosage: SEE IMAGE
     Route: 042
     Dates: start: 20050404, end: 20050513

REACTIONS (4)
  - CHORIOCARCINOMA [None]
  - METASTASES TO LUNG [None]
  - METRORRHAGIA [None]
  - UTERINE HAEMORRHAGE [None]
